FAERS Safety Report 5780017-5 (Version None)
Quarter: 2008Q2

REPORT INFORMATION
  Report Type: 
  Country: None (occurrence: None)
  Receive Date: 20080620
  Receipt Date: 20080618
  Transmission Date: 20081010
  Serious: Yes (Hospitalization, Other)
  Sender: FDA-Public Use
  Company Number: FR-BRISTOL-MYERS SQUIBB COMPANY-14233597

PATIENT
  Age: 83 Year
  Sex: Female

DRUGS (5)
  1. COUMADIN [Suspect]
     Dosage: 1 DOSAGE FORM=1.5 TABLET/D ALTERNATING WITH 1.25 TABLET/D.
     Dates: end: 20080423
  2. CO-RENITEC [Concomitant]
  3. ISRADIPINE [Concomitant]
  4. EFFEXOR [Concomitant]
  5. INSULATARD [Concomitant]

REACTIONS (2)
  - GASTRIC ULCER HAEMORRHAGE [None]
  - INTERNATIONAL NORMALISED RATIO INCREASED [None]
